FAERS Safety Report 12160045 (Version 1)
Quarter: 2016Q1

REPORT INFORMATION
  Report Type: Spontaneous
  Country: US (occurrence: US)
  Receive Date: 20160308
  Receipt Date: 20160308
  Transmission Date: 20160526
  Serious: No
  Sender: FDA-Public Use
  Company Number: US-MEDA-2016020091

PATIENT
  Age: 58 Year
  Sex: Female
  Weight: 45 kg

DRUGS (4)
  1. DYMISTA [Suspect]
     Active Substance: AZELASTINE HYDROCHLORIDE\FLUTICASONE PROPIONATE
     Indication: SEASONAL ALLERGY
     Dates: start: 20160223, end: 20160224
  2. FLONASE [Concomitant]
     Active Substance: FLUTICASONE PROPIONATE
  3. PLAQUENIL [Concomitant]
     Active Substance: HYDROXYCHLOROQUINE SULFATE
     Indication: UNDIFFERENTIATED CONNECTIVE TISSUE DISEASE
     Route: 048
  4. BENADRYL [Concomitant]
     Active Substance: DIPHENHYDRAMINE HYDROCHLORIDE

REACTIONS (1)
  - Poor quality sleep [Recovered/Resolved]

NARRATIVE: CASE EVENT DATE: 20160223
